FAERS Safety Report 13449193 (Version 1)
Quarter: 2017Q2

REPORT INFORMATION
  Report Type: Spontaneous
  Country: US (occurrence: US)
  Receive Date: 20170417
  Receipt Date: 20170417
  Transmission Date: 20170830
  Serious: No
  Sender: FDA-Public Use
  Company Number: US-009507513-1704USA001771

PATIENT
  Age: 29 Year
  Sex: Female
  Weight: 92.06 kg

DRUGS (1)
  1. NUVARING [Suspect]
     Active Substance: ETHINYL ESTRADIOL\ETONOGESTREL
     Indication: CONTRACEPTION
     Dosage: THREE WEEKS IN, 1 WEEK BREAK, QM
     Route: 067
     Dates: start: 201607, end: 20170331

REACTIONS (5)
  - Medical device site discomfort [Recovered/Resolved]
  - Product quality issue [Unknown]
  - Medical device site discomfort [Unknown]
  - Device breakage [Unknown]
  - Device breakage [Unknown]

NARRATIVE: CASE EVENT DATE: 201612
